FAERS Safety Report 16979565 (Version 2)
Quarter: 2019Q4

REPORT INFORMATION
  Report Type: Report from Study
  Country: GB (occurrence: GB)
  Receive Date: 20191031
  Receipt Date: 20191219
  Transmission Date: 20200122
  Serious: Yes (Other)
  Sender: FDA-Public Use
  Company Number: GB-PFIZER INC-2019462176

PATIENT
  Age: 68 Year
  Sex: Female

DRUGS (4)
  1. GABAPENTIN. [Suspect]
     Active Substance: GABAPENTIN
     Indication: NEURALGIA
     Dosage: 600 MG, 1X/DAY
     Route: 065
  2. DUODOPA [Interacting]
     Active Substance: CARBIDOPA\LEVODOPA
     Dosage: UNK, (CONTINUOUS RATE: 4.0MLS/HR)
     Route: 050
     Dates: end: 20191007
  3. DUODOPA [Interacting]
     Active Substance: CARBIDOPA\LEVODOPA
     Dosage: UNK, (CONTINUOUS RATE: 4.2MLS/HR)
     Route: 050
     Dates: start: 20191007
  4. DUODOPA [Interacting]
     Active Substance: CARBIDOPA\LEVODOPA
     Indication: PARKINSON^S DISEASE
     Dosage: UNK, (100ML CASSETTE DAILY5MG/1ML)
     Route: 050

REACTIONS (7)
  - Drug interaction [Unknown]
  - Drug ineffective [Recovering/Resolving]
  - Freezing phenomenon [Unknown]
  - Neuralgia [Recovering/Resolving]
  - Parkinson^s disease [Unknown]
  - Mobility decreased [Unknown]
  - Device issue [Recovered/Resolved]

NARRATIVE: CASE EVENT DATE: 20190821
